FAERS Safety Report 6148772-2 (Version None)
Quarter: 2009Q1

REPORT INFORMATION
  Report Type: 
  Country: None (occurrence: None)
  Receive Date: 20090331
  Receipt Date: 20090319
  Transmission Date: 20090719
  Serious: Yes (Other)
  Sender: FDA-Public Use
  Company Number: THYM-1000960

PATIENT

DRUGS (1)
  1. THYMOGLOBULIN [Suspect]
     Indication: TRANSPLANT

REACTIONS (1)
  - CARDIAC ARREST [None]
